FAERS Safety Report 5131742-0 (Version None)
Quarter: 2006Q4

REPORT INFORMATION
  Report Type: 
  Country: None (occurrence: None)
  Receive Date: 20061013
  Receipt Date: 20061003
  Transmission Date: 20070319
  Serious: Yes (Hospitalization, Other)
  Sender: FDA-Public Use
  Company Number: HQWYE864110OCT06

PATIENT
  Age: 7 Year
  Sex: Female

DRUGS (3)
  1. ADVIL [Suspect]
     Indication: LYMPHADENOPATHY
     Dosage: 15 MG/KG/DAY FOR TWO DOSES ORAL
     Route: 048
     Dates: start: 20060820, end: 20060820
  2. ADVIL [Suspect]
     Indication: PYREXIA
     Dosage: 15 MG/KG/DAY FOR TWO DOSES ORAL
     Route: 048
     Dates: start: 20060820, end: 20060820
  3. ACETAMINOPHEN [Concomitant]

REACTIONS (6)
  - BETA HAEMOLYTIC STREPTOCOCCAL INFECTION [None]
  - C-REACTIVE PROTEIN INCREASED [None]
  - CELLULITIS [None]
  - CONDITION AGGRAVATED [None]
  - HAEMOGLOBIN DECREASED [None]
  - LYMPHADENITIS [None]
